FAERS Safety Report 4902576-4 (Version None)
Quarter: 2006Q1

REPORT INFORMATION
  Report Type: 
  Country: None (occurrence: None)
  Receive Date: 20060202
  Receipt Date: 20060116
  Transmission Date: 20060701
  Serious: Yes (Other)
  Sender: FDA-Public Use
  Company Number: ALMO2005052

PATIENT
  Age: 34 Year
  Sex: Female
  Weight: 60 kg

DRUGS (2)
  1. ALMOGRAN [Suspect]
     Indication: MIGRAINE
     Dosage: 25 MUG PO
     Route: 048
     Dates: start: 20050620, end: 20050621
  2. XANAX [Concomitant]

REACTIONS (3)
  - DYSPNOEA [None]
  - SWOLLEN TONGUE [None]
  - TRISMUS [None]
